FAERS Safety Report 6308672-1 (Version None)
Quarter: 2009Q3

REPORT INFORMATION
  Report Type: 
  Country: None (occurrence: None)
  Receive Date: 20090813
  Receipt Date: 20090513
  Transmission Date: 20100115
  Serious: Yes (Death, Life-Threatening, Hospitalization, Other)
  Sender: FDA-Public Use
  Company Number: ZA-SANOFI-SYNTHELABO-F01200900387

PATIENT
  Sex: Female

DRUGS (5)
  1. DANTRON [Concomitant]
     Indication: NAUSEA
     Dosage: 40 MG
     Route: 048
     Dates: start: 20090216, end: 20090309
  2. XELODA [Suspect]
     Dosage: 1000 MG BID, DAYS 1-14, Q3W
     Route: 048
     Dates: start: 20090309
  3. ONICIT [Concomitant]
     Indication: NAUSEA
     Dosage: 0.25 MG
     Route: 042
     Dates: start: 20090216, end: 20090309
  4. ELOXATIN [Suspect]
     Indication: COLON CANCER METASTATIC
     Route: 041
     Dates: start: 20090309, end: 20090309
  5. DECADRON [Concomitant]
     Indication: PROPHYLAXIS
     Dosage: 8 MG
     Route: 041
     Dates: start: 20090216, end: 20090309

REACTIONS (7)
  - DEHYDRATION [None]
  - DIARRHOEA [None]
  - EMPHYSEMA [None]
  - INTESTINAL OBSTRUCTION [None]
  - NAUSEA [None]
  - NEUTROPENIA [None]
  - VOMITING [None]
